FAERS Safety Report 9669330 (Version 1)
Quarter: 2013Q4

REPORT INFORMATION
  Report Type: Spontaneous
  Country: GB (occurrence: GB)
  Receive Date: 20131105
  Receipt Date: 20131105
  Transmission Date: 20140711
  Serious: Yes (Other)
  Sender: FDA-Public Use
  Company Number: GB-JNJFOC-20131017748

PATIENT
  Age: 27 Year
  Sex: Male

DRUGS (1)
  1. CONCERTA XL [Suspect]
     Indication: PRODUCT USED FOR UNKNOWN INDICATION
     Route: 048
     Dates: start: 20130828, end: 20130910

REACTIONS (2)
  - Paranoia [Recovered/Resolved]
  - Off label use [Unknown]
